FAERS Safety Report 10500989 (Version 16)
Quarter: 2019Q4

REPORT INFORMATION
  Report Type: Spontaneous
  Country: CA (occurrence: CA)
  Receive Date: 20141007
  Receipt Date: 20191227
  Transmission Date: 20200122
  Serious: Yes (Hospitalization, Other)
  Sender: FDA-Public Use
  Company Number: CA-ROCHE-1470002

PATIENT
  Age: 62 Year
  Sex: Female

DRUGS (12)
  1. XOLAIR [Suspect]
     Active Substance: OMALIZUMAB
     Route: 058
     Dates: start: 20191018
  2. XOLAIR [Suspect]
     Active Substance: OMALIZUMAB
     Route: 058
     Dates: start: 20191028
  3. AERIUS (DESLORATADINE) [Concomitant]
     Active Substance: DESLORATADINE
     Indication: HYPERSENSITIVITY
     Route: 048
     Dates: start: 201702
  4. XOLAIR [Suspect]
     Active Substance: OMALIZUMAB
     Indication: ASTHMA
     Route: 058
     Dates: start: 20091112
  5. XOLAIR [Suspect]
     Active Substance: OMALIZUMAB
     Route: 058
     Dates: start: 20161024
  6. ADVAIR HFA [Concomitant]
     Active Substance: FLUTICASONE PROPIONATE\SALMETEROL XINAFOATE
     Indication: PRODUCT USED FOR UNKNOWN INDICATION
     Dosage: 2 DF, BID
     Route: 055
     Dates: start: 2003
  7. VENTOLIN [Concomitant]
     Active Substance: ALBUTEROL SULFATE
     Indication: ASTHMA
     Dosage: 2 DF, PRN
     Route: 055
     Dates: start: 2003
  8. XOLAIR [Suspect]
     Active Substance: OMALIZUMAB
     Route: 058
     Dates: start: 20150220
  9. AVAMYS [Concomitant]
     Active Substance: FLUTICASONE FUROATE
     Indication: PRODUCT USED FOR UNKNOWN INDICATION
     Dosage: 4 DF, PRN
     Route: 045
     Dates: start: 2015
  10. XOLAIR [Suspect]
     Active Substance: OMALIZUMAB
     Route: 058
     Dates: start: 20161216
  11. XOLAIR [Suspect]
     Active Substance: OMALIZUMAB
     Route: 058
     Dates: start: 20161219
  12. SINGULAIR [Concomitant]
     Active Substance: MONTELUKAST SODIUM
     Indication: PRODUCT USED FOR UNKNOWN INDICATION
     Dosage: 1 DF, QD
     Route: 048
     Dates: start: 2012

REACTIONS (17)
  - Weight decreased [Unknown]
  - Insomnia [Unknown]
  - Rhinitis [Unknown]
  - Blood immunoglobulin E increased [Unknown]
  - Dyspnoea [Not Recovered/Not Resolved]
  - Scratch [Not Recovered/Not Resolved]
  - Spirometry abnormal [Unknown]
  - Headache [Unknown]
  - Pulmonary function test decreased [Unknown]
  - Precancerous skin lesion [Unknown]
  - Precancerous cells present [Unknown]
  - Breast cyst [Unknown]
  - Cough [Recovering/Resolving]
  - Blood pressure increased [Unknown]
  - Fatigue [Unknown]
  - Asthma [Not Recovered/Not Resolved]
  - Malaise [Unknown]

NARRATIVE: CASE EVENT DATE: 20150220
